FAERS Safety Report 18417685 (Version 2)
Quarter: 2020Q4

REPORT INFORMATION
  Report Type: Spontaneous
  Country: JP (occurrence: JP)
  Receive Date: 20201023
  Receipt Date: 20201105
  Transmission Date: 20210114
  Serious: Yes (Other)
  Sender: FDA-Public Use
  Company Number: JP-UCBSA-2020030779

PATIENT
  Age: 33 Year
  Sex: Female

DRUGS (5)
  1. MYSER [DIFLUPREDNATE] [Concomitant]
  2. NEORAL [Concomitant]
     Active Substance: CYCLOSPORINE
  3. PROPETO [Concomitant]
     Active Substance: PETROLATUM
  4. LAFUTIDINE [Concomitant]
     Active Substance: LAFUTIDINE
  5. CIMZIA [Suspect]
     Active Substance: CERTOLIZUMAB PEGOL
     Indication: PUSTULAR PSORIASIS
     Dosage: 400 MILLIGRAM
     Route: 058
     Dates: start: 20200731, end: 20200731

REACTIONS (1)
  - Anaphylactic reaction [Unknown]

NARRATIVE: CASE EVENT DATE: 20200731
